FAERS Safety Report 10041107 (Version 1)
Quarter: 2014Q1

REPORT INFORMATION
  Report Type: Spontaneous
  Country: US (occurrence: None)
  Receive Date: 20140326
  Receipt Date: 20140326
  Transmission Date: 20141002
  Serious: Yes (Other)
  Sender: FDA-Public Use
  Company Number: None

PATIENT
  Age: 15 Year
  Sex: Male

DRUGS (1)
  1. FOCALIN XR [Suspect]
     Route: 048
     Dates: start: 20010314

REACTIONS (6)
  - Product substitution issue [None]
  - Agitation [None]
  - Disturbance in attention [None]
  - Depression [None]
  - Attention deficit/hyperactivity disorder [None]
  - Condition aggravated [None]
